FAERS Safety Report 16535394 (Version 1)
Quarter: 2019Q3

REPORT INFORMATION
  Report Type: Spontaneous
  Country: NL (occurrence: NL)
  Receive Date: 20190705
  Receipt Date: 20190705
  Transmission Date: 20191004
  Serious: Yes (Other)
  Sender: FDA-Public Use
  Company Number: NL-TEVA-2019-NL-1073426

PATIENT
  Sex: Female
  Weight: 58 kg

DRUGS (1)
  1. PANTOPRAZOL MAAGSAPRESISTENTE TABLET, 40 MG (MILLIGRAM) [Suspect]
     Active Substance: PANTOPRAZOLE SODIUM
     Indication: PRODUCT USED FOR UNKNOWN INDICATION
     Dosage: 1DD, 40MG
     Dates: start: 2012

REACTIONS (2)
  - Hypokalaemia [Recovered/Resolved]
  - Hypomagnesaemia [Unknown]
